FAERS Safety Report 8483620-7 (Version None)
Quarter: 2012Q3

REPORT INFORMATION
  Report Type: 
  Country: None (occurrence: None)
  Receive Date: 20120702
  Receipt Date: 20120627
  Transmission Date: 20120928
  Serious: Yes (Hospitalization)
  Sender: FDA-Public Use
  Company Number: TR-ROCHE-1082202

PATIENT
  Sex: Male

DRUGS (1)
  1. XELODA [Suspect]
     Indication: HEPATIC NEOPLASM MALIGNANT
     Dosage: 3+3
     Route: 048
     Dates: start: 20120320

REACTIONS (3)
  - PYREXIA [None]
  - ASTHENIA [None]
  - LOCALISED OEDEMA [None]
